FAERS Safety Report 15130897 (Version 5)
Quarter: 2018Q3

REPORT INFORMATION
  Report Type: Spontaneous
  Country: JP (occurrence: JP)
  Receive Date: 20180711
  Receipt Date: 20180822
  Transmission Date: 20181010
  Serious: Yes (Other)
  Sender: FDA-Public Use
  Company Number: JP-PFIZER INC-2018276108

PATIENT
  Age: 67 Year
  Sex: Female
  Weight: 52 kg

DRUGS (4)
  1. FASLODEX [Concomitant]
     Active Substance: FULVESTRANT
     Dosage: 500 MG, ONCE DAILY
     Dates: start: 20180614, end: 20180614
  2. IBRANCE [Suspect]
     Active Substance: PALBOCICLIB
     Indication: BREAST CANCER RECURRENT
     Dosage: 125 MG, ONCE DAILY
     Route: 048
     Dates: start: 20180615, end: 20180627
  3. LETROZOLE. [Concomitant]
     Active Substance: LETROZOLE
     Dosage: UNK
  4. IBRANCE [Suspect]
     Active Substance: PALBOCICLIB
     Dosage: 125 MG, ONCE DAILY
     Route: 048
     Dates: start: 201807, end: 20180717

REACTIONS (9)
  - Oedema [Unknown]
  - Renal impairment [Recovered/Resolved]
  - Ascites [Unknown]
  - Atelectasis [Unknown]
  - Neoplasm progression [Unknown]
  - Osteosclerosis [Unknown]
  - Pericardial effusion [Unknown]
  - Kidney enlargement [Unknown]
  - Renal cyst [Unknown]

NARRATIVE: CASE EVENT DATE: 2018
